FAERS Safety Report 5940282-8 (Version None)
Quarter: 2008Q4

REPORT INFORMATION
  Report Type: 
  Country: None (occurrence: None)
  Receive Date: 20081104
  Receipt Date: 20081020
  Transmission Date: 20090506
  Serious: Yes (Hospitalization)
  Sender: FDA-Public Use
  Company Number: US-ELI_LILLY_AND_COMPANY-US200809002692

PATIENT
  Sex: Female
  Weight: 79.365 kg

DRUGS (16)
  1. BYETTA [Suspect]
     Indication: TYPE 2 DIABETES MELLITUS
     Dosage: 5 UG, 2/D
     Route: 058
     Dates: start: 20060901, end: 20061001
  2. BYETTA [Suspect]
     Dosage: 10 UG, 2/D
     Route: 058
     Dates: start: 20061001
  3. GLYBURIDE AND METFORMIN HCL [Concomitant]
     Indication: TYPE 2 DIABETES MELLITUS
     Dosage: UNK, 4/D
     Route: 048
  4. LASIX [Concomitant]
     Dosage: 40 MG, DAILY (1/D)
  5. POTASSIUM CHLORIDE [Concomitant]
     Dosage: 20 MEQ, DAILY (1/D)
     Route: 048
  6. ASPIRIN [Concomitant]
     Dosage: 81 MG, DAILY (1/D)
  7. PLAVIX [Concomitant]
     Dosage: 75 MG, DAILY (1/D)
     Dates: start: 20070521
  8. VYTORIN [Concomitant]
     Dosage: UNK, DAILY (1/D)
     Route: 048
  9. METOPROLOL TARTRATE [Concomitant]
     Dosage: 50 MG, 2/D
  10. ZANTAC [Concomitant]
     Indication: MUCOSAL EROSION
     Dosage: 75 MG, 2/D
  11. GLUCOTROL [Concomitant]
     Dosage: UNK, UNKNOWN
  12. LOPRESSOR [Concomitant]
     Dosage: UNK, 2/D
  13. IMDUR [Concomitant]
     Dosage: UNK, UNKNOWN
  14. ZOCOR [Concomitant]
     Dosage: UNK, UNKNOWN
  15. MICARDIS [Concomitant]
     Dosage: UNK, UNKNOWN
  16. EVISTA [Concomitant]
     Dosage: UNK, UNKNOWN

REACTIONS (10)
  - BLOOD ALKALINE PHOSPHATASE [None]
  - BLOOD MAGNESIUM [None]
  - CHOLELITHIASIS [None]
  - CORONARY ARTERY DISEASE [None]
  - DISCOMFORT [None]
  - GASTRITIS [None]
  - GLOMERULAR FILTRATION RATE [None]
  - NAUSEA [None]
  - PAIN [None]
  - STRESS [None]
